APPROVED DRUG PRODUCT: NORGESTIMATE AND ETHINYL ESTRADIOL
Active Ingredient: ETHINYL ESTRADIOL; NORGESTIMATE
Strength: 0.035MG,0.035MG,0.035MG;0.18MG,0.215MG,0.25MG
Dosage Form/Route: TABLET;ORAL-28
Application: A200494 | Product #001 | TE Code: AB
Applicant: GLENMARK PHARMACEUTICALS LTD
Approved: Jun 17, 2011 | RLD: No | RS: Yes | Type: RX